FAERS Safety Report 5129506-7 (Version None)
Quarter: 2006Q4

REPORT INFORMATION
  Report Type: 
  Country: None (occurrence: None)
  Receive Date: 20061012
  Receipt Date: 20061002
  Transmission Date: 20070319
  Serious: Yes (Disabling, Other)
  Sender: FDA-Public Use
  Company Number: 2006120374

PATIENT
  Sex: Female
  Weight: 90.7194 kg

DRUGS (9)
  1. LIPITOR [Suspect]
     Indication: BLOOD CHOLESTEROL INCREASED
  2. ZETIA [Suspect]
     Indication: BLOOD CHOLESTEROL INCREASED
  3. FUROSEMIDE [Concomitant]
  4. METFORMIN HCL [Concomitant]
  5. GABAPENTIN [Concomitant]
  6. POTASSIUM (POTASSIUM) [Concomitant]
  7. WARFARIN SODIUM [Concomitant]
  8. GLIMEPIRIDE [Concomitant]
  9. ESCITALOPRAM OXALATE [Concomitant]

REACTIONS (3)
  - MOVEMENT DISORDER [None]
  - MUSCLE SPASMS [None]
  - PAIN IN EXTREMITY [None]
